FAERS Safety Report 8169892-7 (Version None)
Quarter: 2012Q1

REPORT INFORMATION
  Report Type: 
  Country: None (occurrence: None)
  Receive Date: 20120105
  Receipt Date: 20101119
  Transmission Date: 20120608
  Serious: Yes (Other)
  Sender: FDA-Public Use
  Company Number: US-005532

PATIENT
  Age: 39 Year
  Sex: Female
  Weight: 129.5 kg

DRUGS (2)
  1. PROHANCE [Suspect]
     Indication: MASS
     Dosage: 20ML ONCE INTRAVENOUS (NOT OTHERWISE SPECIFIED)
     Route: 042
     Dates: start: 20101119, end: 20101119
  2. PROHANCE [Suspect]
     Indication: NUCLEAR MAGNETIC RESONANCE IMAGING
     Dosage: 20ML ONCE INTRAVENOUS (NOT OTHERWISE SPECIFIED)
     Route: 042
     Dates: start: 20101119, end: 20101119

REACTIONS (4)
  - PRURITUS [None]
  - PHARYNGEAL OEDEMA [None]
  - URTICARIA [None]
  - EYELID OEDEMA [None]
